FAERS Safety Report 11317200 (Version 2)
Quarter: 2015Q3

REPORT INFORMATION
  Report Type: Report from Study
  Country: DE (occurrence: DE)
  Receive Date: 20150728
  Receipt Date: 20150805
  Transmission Date: 20151125
  Serious: Yes (Death)
  Sender: FDA-Public Use
  Company Number: DE-ACTELION-A-NJ2015-121627

PATIENT
  Age: 64 Year
  Sex: Male
  Weight: 84 kg

DRUGS (11)
  1. VENTOLAIR [Concomitant]
     Active Substance: BECLOMETHASONE DIPROPIONATE
  2. VENTAVIS [Suspect]
     Active Substance: ILOPROST
     Indication: PULMONARY ARTERIAL HYPERTENSION
     Dosage: 5.0 MCG, 6ID
     Route: 055
     Dates: start: 20150205
  3. XARELTO [Suspect]
     Active Substance: RIVAROXABAN
     Indication: PRODUCT USED FOR UNKNOWN INDICATION
     Dosage: 20 MG, UNK
     Route: 048
  4. TORASEMID [Concomitant]
     Active Substance: TORSEMIDE
  5. OLODATEROL [Concomitant]
     Active Substance: OLODATEROL
  6. SALBUTAMOL [Concomitant]
     Active Substance: ALBUTEROL
  7. SPIRIVA [Concomitant]
     Active Substance: TIOTROPIUM BROMIDE MONOHYDRATE
  8. DIOVAN [Concomitant]
     Active Substance: VALSARTAN
  9. PANTOZOL [Concomitant]
     Active Substance: PANTOPRAZOLE SODIUM
  10. RIOCIGUAT [Suspect]
     Active Substance: RIOCIGUAT
     Indication: PULMONARY ARTERIAL HYPERTENSION
     Dosage: 1.0 MG, TID
     Route: 048
     Dates: start: 20150708
  11. OPSUMIT [Concomitant]
     Active Substance: MACITENTAN

REACTIONS (1)
  - Sudden death [Fatal]

NARRATIVE: CASE EVENT DATE: 20150716
